FAERS Safety Report 9057555 (Version 1)
Quarter: 2013Q1

REPORT INFORMATION
  Report Type: Spontaneous
  Country: US (occurrence: None)
  Receive Date: 20130204
  Receipt Date: 20130204
  Transmission Date: 20140127
  Serious: No
  Sender: FDA-Public Use
  Company Number: None

PATIENT
  Age: 49 Year
  Sex: Female
  Weight: 111.59 kg

DRUGS (2)
  1. TAMIFLU 75MG GENENTECH [Suspect]
     Indication: NEUROPSYCHIATRIC SYNDROME
     Route: 048
     Dates: start: 20130124, end: 20130128
  2. TAMIFLU 75MG GENENTECH [Suspect]
     Indication: NIGHTMARE
     Route: 048
     Dates: start: 20130124, end: 20130128

REACTIONS (6)
  - Nightmare [None]
  - Fear [None]
  - Screaming [None]
  - Feeling abnormal [None]
  - Derealisation [None]
  - Thinking abnormal [None]
